FAERS Safety Report 14744029 (Version 2)
Quarter: 2018Q2

REPORT INFORMATION
  Report Type: Report from Study
  Country: JP (occurrence: JP)
  Receive Date: 20180411
  Receipt Date: 20180514
  Transmission Date: 20180711
  Serious: Yes (Hospitalization)
  Sender: FDA-Public Use
  Company Number: JP-ROCHE-2012246

PATIENT
  Age: 63 Year
  Sex: Male
  Weight: 89 kg

DRUGS (28)
  1. TACROLIMUS HYDRATE [Suspect]
     Active Substance: TACROLIMUS
     Route: 048
     Dates: start: 20170608, end: 20170616
  2. PREDNISOLONE. [Suspect]
     Active Substance: PREDNISOLONE
     Route: 048
     Dates: start: 20170315, end: 20170405
  3. SOLU-CORTEF [Concomitant]
     Active Substance: HYDROCORTISONE SODIUM SUCCINATE
     Indication: PREMEDICATION
     Route: 042
     Dates: start: 20170201, end: 20170201
  4. TACROLIMUS HYDRATE [Suspect]
     Active Substance: TACROLIMUS
     Route: 048
     Dates: start: 20170222, end: 20170224
  5. TACROLIMUS HYDRATE [Suspect]
     Active Substance: TACROLIMUS
     Route: 048
     Dates: start: 20170305, end: 20170321
  6. TACROLIMUS HYDRATE [Suspect]
     Active Substance: TACROLIMUS
     Route: 048
     Dates: start: 20170617, end: 20170703
  7. PREDNISOLONE SODIUM SUCCINATE [Suspect]
     Active Substance: PREDNISOLONE SODIUM SUCCINATE
     Route: 042
     Dates: start: 20170219, end: 20170221
  8. MYCOPHENOLATE MOFETIL. [Suspect]
     Active Substance: MYCOPHENOLATE MOFETIL
     Route: 048
     Dates: start: 20170218, end: 20170622
  9. TACROLIMUS HYDRATE [Suspect]
     Active Substance: TACROLIMUS
     Route: 042
     Dates: start: 20171117, end: 20180118
  10. TACROLIMUS HYDRATE [Suspect]
     Active Substance: TACROLIMUS
     Indication: TRANSPLANT REJECTION
     Route: 048
     Dates: start: 20170220, end: 20170221
  11. TACROLIMUS HYDRATE [Suspect]
     Active Substance: TACROLIMUS
     Route: 048
     Dates: start: 20170704
  12. TACROLIMUS HYDRATE [Suspect]
     Active Substance: TACROLIMUS
     Route: 048
     Dates: start: 20170425, end: 20170607
  13. PREDNISOLONE. [Suspect]
     Active Substance: PREDNISOLONE
     Route: 048
     Dates: start: 20170406, end: 20170605
  14. PREDNISOLONE. [Suspect]
     Active Substance: PREDNISOLONE
     Indication: TRANSPLANT REJECTION
     Route: 048
     Dates: start: 20170222, end: 20170228
  15. BAKTAR [Concomitant]
     Active Substance: SULFAMETHOXAZOLE\TRIMETHOPRIM
     Route: 048
     Dates: start: 20170218, end: 20170405
  16. RITUXIMAB. [Suspect]
     Active Substance: RITUXIMAB
     Indication: TRANSPLANT REJECTION
     Route: 041
     Dates: start: 20170201, end: 20170201
  17. PREDNISOLONE. [Suspect]
     Active Substance: PREDNISOLONE
     Route: 048
     Dates: start: 20170301, end: 20170314
  18. POLARAMINE [Concomitant]
     Active Substance: DEXCHLORPHENIRAMINE MALEATE
     Indication: PREMEDICATION
     Route: 042
     Dates: start: 20170201, end: 20170201
  19. TACROLIMUS HYDRATE [Suspect]
     Active Substance: TACROLIMUS
     Indication: TRANSPLANT REJECTION
     Route: 042
     Dates: start: 20170216, end: 20170218
  20. TACROLIMUS HYDRATE [Suspect]
     Active Substance: TACROLIMUS
     Route: 042
     Dates: start: 20170219, end: 20170219
  21. TACROLIMUS HYDRATE [Suspect]
     Active Substance: TACROLIMUS
     Route: 048
     Dates: start: 20170225, end: 20170304
  22. TACROLIMUS HYDRATE [Suspect]
     Active Substance: TACROLIMUS
     Route: 048
     Dates: start: 20170414, end: 20170424
  23. BARACLUDE [Concomitant]
     Active Substance: ENTECAVIR
     Route: 048
     Dates: start: 20170217
  24. MYCOPHENOLATE MOFETIL. [Suspect]
     Active Substance: MYCOPHENOLATE MOFETIL
     Indication: TRANSPLANT REJECTION
     Route: 048
     Dates: start: 20170216, end: 20170217
  25. TACROLIMUS HYDRATE [Suspect]
     Active Substance: TACROLIMUS
     Route: 048
     Dates: start: 20170322, end: 20170413
  26. PREDNISOLONE SODIUM SUCCINATE [Suspect]
     Active Substance: PREDNISOLONE SODIUM SUCCINATE
     Indication: TRANSPLANT REJECTION
     Route: 042
     Dates: start: 20170216, end: 20170218
  27. PREDNISOLONE. [Suspect]
     Active Substance: PREDNISOLONE
     Route: 048
     Dates: start: 20170704, end: 20180118
  28. ELBASVIR [Concomitant]
     Active Substance: ELBASVIR
     Indication: HEPATIC CIRRHOSIS
     Route: 048
     Dates: start: 20170424, end: 20170716

REACTIONS (4)
  - Cytomegalovirus infection [Recovering/Resolving]
  - Urinary tract infection [Recovering/Resolving]
  - Chronic graft versus host disease [Recovering/Resolving]
  - Human herpesvirus 6 infection [Recovering/Resolving]

NARRATIVE: CASE EVENT DATE: 20170228
